FAERS Safety Report 17076168 (Version 5)
Quarter: 2020Q3

REPORT INFORMATION
  Report Type: Spontaneous
  Country: GB (occurrence: JP)
  Receive Date: 20191126
  Receipt Date: 20200902
  Transmission Date: 20201102
  Serious: Yes (Death, Other)
  Sender: FDA-Public Use
  Company Number: JP-ASTELLAS-2019US046612

PATIENT
  Age: 60 Year
  Sex: Female
  Weight: 48 kg

DRUGS (38)
  1. AVASTIN [Suspect]
     Active Substance: BEVACIZUMAB
     Route: 041
     Dates: start: 20161214, end: 20170308
  2. TECENTRIQ [Suspect]
     Active Substance: ATEZOLIZUMAB
     Indication: NON-SMALL CELL LUNG CANCER
     Dosage: 150 MG, UNKNOWN FREQ. (DOSAGE IS UNCERTAIN)
     Route: 041
     Dates: start: 20191029, end: 20191211
  3. RANMARK [Suspect]
     Active Substance: DENOSUMAB
     Indication: METASTASES TO BONE
     Route: 065
     Dates: start: 20190904, end: 20190904
  4. DOCETAXEL. [Concomitant]
     Active Substance: DOCETAXEL
     Indication: LUNG ADENOCARCINOMA
     Dosage: UNK, UNKNOWN FREQ. (DOSAGE IS UNCERTAIN)
     Route: 041
  5. PEGFILGRASTIM [Concomitant]
     Active Substance: PEGFILGRASTIM
     Indication: PRODUCT USED FOR UNKNOWN INDICATION
     Route: 058
     Dates: start: 20150805, end: 20161117
  6. ERLOTINIB [Suspect]
     Active Substance: ERLOTINIB
     Indication: LUNG ADENOCARCINOMA
     Dosage: 150 MG, UNKNOWN FREQ. (DOSAGE IS UNCERTAIN)
     Route: 048
     Dates: start: 20130917
  7. ERLOTINIB [Suspect]
     Active Substance: ERLOTINIB
     Route: 048
     Dates: start: 20140507, end: 2014
  8. ERLOTINIB [Suspect]
     Active Substance: ERLOTINIB
     Route: 048
     Dates: start: 20171213, end: 201712
  9. ERLOTINIB [Suspect]
     Active Substance: ERLOTINIB
     Route: 048
     Dates: start: 20180815
  10. AVASTIN [Suspect]
     Active Substance: BEVACIZUMAB
     Route: 041
     Dates: start: 201308, end: 2013
  11. AVASTIN [Suspect]
     Active Substance: BEVACIZUMAB
     Route: 041
     Dates: start: 20170412, end: 20170830
  12. TAGRISSO [Concomitant]
     Active Substance: OSIMERTINIB
     Indication: LUNG ADENOCARCINOMA
     Dosage: 40 MG, UNKNOWN FREQ.(DOSE INTERVAL UNCERTAINTY)
     Route: 048
     Dates: start: 20180905
  13. ERLOTINIB [Suspect]
     Active Substance: ERLOTINIB
     Route: 048
     Dates: start: 20171227, end: 20180314
  14. AVASTIN [Suspect]
     Active Substance: BEVACIZUMAB
     Dosage: UNK UNK, UNKNOWN FREQ.
     Route: 041
     Dates: start: 20200108
  15. RANMARK [Suspect]
     Active Substance: DENOSUMAB
     Route: 065
     Dates: start: 20191002, end: 20191002
  16. CARBOPLATIN. [Concomitant]
     Active Substance: CARBOPLATIN
     Indication: LUNG ADENOCARCINOMA
     Dosage: UNK UNK, UNKNOWN FREQ.(DOSAGE IS UNCERTAIN)
     Route: 041
     Dates: start: 20191029, end: 20191211
  17. ERLOTINIB [Suspect]
     Active Substance: ERLOTINIB
     Route: 048
     Dates: start: 20150202, end: 20150613
  18. ERLOTINIB [Suspect]
     Active Substance: ERLOTINIB
     Dosage: 50 MG, UNKNOWN FREQ. (ONLY ON THE THIRD)
     Route: 048
     Dates: start: 20180725
  19. AVASTIN [Suspect]
     Active Substance: BEVACIZUMAB
     Route: 041
     Dates: start: 20180516, end: 20180606
  20. TECENTRIQ [Suspect]
     Active Substance: ATEZOLIZUMAB
     Dosage: 150 MG, UNKNOWN FREQ. (MOST RECENT DOSE: //2020)
     Route: 041
     Dates: start: 20200108
  21. PEMETREXED DISODIUM HEPTAHYDRATE [Concomitant]
     Active Substance: PEMETREXED
     Indication: LUNG ADENOCARCINOMA
     Dosage: UNK, UNKNOWN FREQ. (DOSAGE IS UNCERTAIN)
     Route: 041
     Dates: start: 201305, end: 2013
  22. PACLITAXEL. [Concomitant]
     Active Substance: PACLITAXEL
     Indication: NON-SMALL CELL LUNG CANCER
     Dosage: UNK, UNKNOWN FREQ. (DOSAGE IS UNCERTAIN)
     Route: 041
     Dates: start: 20191029, end: 20191211
  23. ERLOTINIB [Suspect]
     Active Substance: ERLOTINIB
     Route: 048
     Dates: start: 20180411, end: 20180606
  24. TAXOTERE [Suspect]
     Active Substance: DOCETAXEL
     Route: 041
     Dates: start: 20170412, end: 20170830
  25. CARBOPLATIN. [Concomitant]
     Active Substance: CARBOPLATIN
     Dosage: UNK UNK, UNKNOWN FREQ. (DOSAGE IS UNCERTAIN)
     Route: 041
     Dates: start: 20200108, end: 2020
  26. PACLITAXEL. [Concomitant]
     Active Substance: PACLITAXEL
     Indication: LUNG ADENOCARCINOMA
     Dosage: UNK, UNKNOWN FREQ. (DOSAGE IS UNCERTAIN)
     Route: 041
     Dates: start: 20200108, end: 2020
  27. ALLELOCK [Suspect]
     Active Substance: OLOPATADINE HYDROCHLORIDE
     Indication: PRODUCT USED FOR UNKNOWN INDICATION
     Dosage: UNK, UNKNOWN FREQ. (DOSAGE IS UNCERTAIN)
     Route: 065
  28. GEMCITABINE HYDROCHLORIDE. [Suspect]
     Active Substance: GEMCITABINE HYDROCHLORIDE
     Dosage: UNK UNK, UNKNOWN FREQ. (DATE OF MOST RECENT DOSE: 09/OCT/2019)
     Route: 041
     Dates: start: 20191002
  29. CARBOPLATIN. [Concomitant]
     Active Substance: CARBOPLATIN
     Indication: NON-SMALL CELL LUNG CANCER
     Dosage: UNK UNK, UNKNOWN FREQ.(DOSAGE IS UNCERTAIN)
     Route: 041
     Dates: start: 201305, end: 2013
  30. ERLOTINIB [Suspect]
     Active Substance: ERLOTINIB
     Route: 048
     Dates: start: 20140730
  31. AVASTIN [Suspect]
     Active Substance: BEVACIZUMAB
     Indication: LUNG ADENOCARCINOMA
     Dosage: 15 MG/KG (690MG,680MG,700MG) WITH UNKNOWN DOSE INTERVAL
     Route: 041
     Dates: start: 201305, end: 2013
  32. AVASTIN [Suspect]
     Active Substance: BEVACIZUMAB
     Route: 041
     Dates: start: 20180704, end: 20180815
  33. TAXOTERE [Suspect]
     Active Substance: DOCETAXEL
     Indication: LUNG ADENOCARCINOMA
     Route: 041
     Dates: start: 20150707, end: 20170308
  34. AVASTIN [Suspect]
     Active Substance: BEVACIZUMAB
     Dosage: UNK UNK, UNKNOWN FREQ.
     Route: 041
     Dates: start: 20190910
  35. AVASTIN [Suspect]
     Active Substance: BEVACIZUMAB
     Dosage: UNK UNK, UNKNOWN FREQ.
     Route: 041
     Dates: start: 20191002
  36. AVASTIN [Suspect]
     Active Substance: BEVACIZUMAB
     Dosage: UNK UNK, UNKNOWN FREQ.
     Route: 041
     Dates: start: 20191029
  37. GEMCITABINE HYDROCHLORIDE. [Suspect]
     Active Substance: GEMCITABINE HYDROCHLORIDE
     Indication: LUNG ADENOCARCINOMA
     Dosage: UNK UNK, UNKNOWN FREQ.(DOSAGE IS UNCERTAIN)
     Route: 041
     Dates: start: 20190910, end: 20190917
  38. TAGRISSO [Concomitant]
     Active Substance: OSIMERTINIB
     Dosage: 80 MG, UNKNOWN FREQ.(DOSE INTERVAL UNCERTAINTY)
     Route: 048
     Dates: start: 20181010

REACTIONS (12)
  - Osteonecrosis of jaw [Recovering/Resolving]
  - Rash [Unknown]
  - Metastases to lung [Unknown]
  - Febrile neutropenia [Unknown]
  - Cholestasis [Recovering/Resolving]
  - Malignant neoplasm progression [Unknown]
  - Neutropenia [Unknown]
  - Febrile neutropenia [Unknown]
  - Neutropenia [Recovered/Resolved]
  - Multiple organ dysfunction syndrome [Fatal]
  - Rash [Recovered/Resolved]
  - Platelet count decreased [Unknown]

NARRATIVE: CASE EVENT DATE: 201308
